FAERS Safety Report 6701657-2 (Version None)
Quarter: 2010Q2

REPORT INFORMATION
  Report Type: 
  Country: None (occurrence: None)
  Receive Date: 20100429
  Receipt Date: 20100422
  Transmission Date: 20101027
  Serious: Yes (Hospitalization)
  Sender: FDA-Public Use
  Company Number: IT-BAYER-201023038GPV

PATIENT
  Age: 25 Year
  Sex: Male

DRUGS (2)
  1. ASPIRIN [Suspect]
     Indication: LOWER RESPIRATORY TRACT INFECTION
     Route: 048
     Dates: start: 20100401, end: 20100404
  2. OKI [Suspect]
     Indication: LOWER RESPIRATORY TRACT INFECTION
     Route: 048
     Dates: start: 20100401, end: 20100404

REACTIONS (3)
  - JAUNDICE [None]
  - OCULAR ICTERUS [None]
  - PRURITUS [None]
